FAERS Safety Report 10089202 (Version 1)
Quarter: 2014Q2

REPORT INFORMATION
  Report Type: Spontaneous
  Country: CN (occurrence: CN)
  Receive Date: 20140421
  Receipt Date: 20140421
  Transmission Date: 20141212
  Serious: Yes (Other)
  Sender: FDA-Public Use
  Company Number: CN-JNJFOC-20140407470

PATIENT
  Sex: 0

DRUGS (6)
  1. DOXORUBICIN HYDROCHLORIDE [Suspect]
     Indication: OSTEOSARCOMA
     Route: 042
  2. METHOTREXATE [Suspect]
     Indication: OSTEOSARCOMA
     Dosage: 6 OR 8 G/M2
     Route: 065
  3. FOLINIC ACID [Suspect]
     Indication: OSTEOSARCOMA
     Route: 065
  4. CISPLATIN [Suspect]
     Indication: OSTEOSARCOMA
     Route: 065
  5. IFOSFAMIDE [Suspect]
     Indication: OSTEOSARCOMA
     Route: 065
  6. MESNA [Suspect]
     Indication: OSTEOSARCOMA
     Route: 065

REACTIONS (8)
  - Bone marrow failure [Recovered/Resolved]
  - Hepatic function abnormal [Unknown]
  - White blood cell count decreased [Unknown]
  - Gingival ulceration [Recovered/Resolved]
  - Rash [Recovered/Resolved]
  - Pyrexia [Unknown]
  - Nausea [Unknown]
  - Vomiting [Unknown]
